FAERS Safety Report 23321730 (Version 1)
Quarter: 2023Q4

REPORT INFORMATION
  Report Type: Spontaneous
  Country: BG (occurrence: BG)
  Receive Date: 20231220
  Receipt Date: 20231220
  Transmission Date: 20240109
  Serious: Yes (Hospitalization, Other)
  Sender: FDA-Public Use
  Company Number: BG-ROCHE-3059873

PATIENT
  Age: 56 Year
  Sex: Female
  Weight: 78 kg

DRUGS (44)
  1. ATEZOLIZUMAB [Suspect]
     Active Substance: ATEZOLIZUMAB
     Indication: Non-small cell lung cancer metastatic
     Dosage: 1200 MG, Q3W (MOST RECENT DATE OF ADMINISTRATION PRIOR TO SAE: 16 FEB 2022)
     Route: 042
     Dates: start: 20211214
  2. BEVACIZUMAB [Suspect]
     Active Substance: BEVACIZUMAB
     Indication: Non-small cell lung cancer metastatic
     Dosage: 1000 MG
     Route: 065
     Dates: start: 20211214
  3. CARBOPLATIN [Suspect]
     Active Substance: CARBOPLATIN
     Indication: Non-small cell lung cancer metastatic
     Dosage: 500 MG
     Route: 065
     Dates: start: 20211214
  4. PACLITAXEL [Suspect]
     Active Substance: PACLITAXEL
     Indication: Non-small cell lung cancer metastatic
     Dosage: 300 MG
     Route: 065
     Dates: start: 20211214
  5. ANAFTIN [Concomitant]
     Indication: Product used for unknown indication
     Dosage: UNK
     Route: 065
     Dates: start: 20211220, end: 20220204
  6. ASPIRIN [Concomitant]
     Active Substance: ASPIRIN
     Indication: Product used for unknown indication
     Dosage: UNK
     Route: 065
  7. ATEZOLIZUMAB [Concomitant]
     Active Substance: ATEZOLIZUMAB
     Indication: Product used for unknown indication
     Dosage: 1200 MG, TIW
     Route: 042
     Dates: start: 20211214
  8. AVANOR [Concomitant]
     Indication: Product used for unknown indication
     Dosage: UNK
     Route: 065
     Dates: start: 20220927
  9. BROMHEXINE [Concomitant]
     Active Substance: BROMHEXINE
     Indication: Product used for unknown indication
     Dosage: UNK, (0.5 DAY)
     Route: 065
     Dates: start: 20220322, end: 20220324
  10. Broncholytin [Concomitant]
     Indication: Cough
     Dosage: UNK
     Route: 065
     Dates: start: 20220616
  11. CLONIDINE HYDROCHLORIDE [Concomitant]
     Active Substance: CLONIDINE HYDROCHLORIDE
     Indication: Product used for unknown indication
     Dosage: UNK, QD
     Route: 065
     Dates: start: 20220216, end: 20220216
  12. CIPROFLOXACIN [Concomitant]
     Active Substance: CIPROFLOXACIN
     Indication: Prophylaxis
     Dosage: UNK
     Route: 065
     Dates: start: 20220927, end: 20221003
  13. CLOPIDOGREL [Concomitant]
     Active Substance: CLOPIDOGREL BISULFATE
     Indication: Product used for unknown indication
     Dosage: UNK
     Route: 065
  14. BISOPROLOL FUMARATE [Concomitant]
     Active Substance: BISOPROLOL FUMARATE
     Indication: Product used for unknown indication
     Dosage: UNK, QD
     Route: 065
  15. BISOPROLOL FUMARATE [Concomitant]
     Active Substance: BISOPROLOL FUMARATE
     Dosage: UNK
     Route: 065
     Dates: start: 20230131
  16. BISOPROLOL FUMARATE [Concomitant]
     Active Substance: BISOPROLOL FUMARATE
     Dosage: UNK (0.5 DAY)
     Route: 065
     Dates: start: 20230201
  17. DEXAMETHASONE [Concomitant]
     Active Substance: DEXAMETHASONE
     Indication: Prophylaxis
     Dosage: UNK, QD
     Route: 065
     Dates: start: 20220322, end: 20220322
  18. DEXAMETHASONE [Concomitant]
     Active Substance: DEXAMETHASONE
     Dosage: UNK, QD
     Route: 065
     Dates: start: 20220414, end: 20220414
  19. Dexofen [Concomitant]
     Dosage: UNK
     Route: 065
     Dates: start: 20230302
  20. Dexofen [Concomitant]
     Indication: Adverse event
     Dosage: UNK (0.5 DAY)
     Route: 065
     Dates: start: 20220115, end: 20220205
  21. Enterol [Concomitant]
     Indication: Prophylaxis
     Dosage: UNK
     Route: 065
     Dates: start: 20220927, end: 20221003
  22. EZEN [Concomitant]
     Indication: Bone pain
     Dosage: UNK, QD
     Route: 065
     Dates: start: 20220927
  23. GENTAMICIN [Concomitant]
     Active Substance: GENTAMICIN
     Indication: Prophylaxis
     Dosage: UNK, QD
     Route: 065
     Dates: start: 20220414, end: 20220416
  24. Geroxynal [Concomitant]
     Indication: Adverse event
     Dosage: UNK
     Route: 065
     Dates: start: 20230209, end: 20230301
  25. LOPERAMIDE [Concomitant]
     Active Substance: LOPERAMIDE
     Indication: Product used for unknown indication
     Dosage: UNK
     Route: 065
     Dates: start: 20220414, end: 20220416
  26. METHYLPREDNISOLONE [Concomitant]
     Active Substance: METHYLPREDNISOLONE
     Indication: Product used for unknown indication
     Dosage: UNK, (0.5 DAYS)
     Route: 065
     Dates: start: 20220322, end: 20220324
  27. METRONIDAZOLE [Concomitant]
     Active Substance: METRONIDAZOLE
     Indication: Prophylaxis
     Dosage: UNK, (0.5 DAY)
     Route: 065
     Dates: start: 20220414, end: 20220416
  28. MOXONIDINE [Concomitant]
     Active Substance: MOXONIDINE
     Indication: Product used for unknown indication
     Dosage: UNK, QD
     Route: 065
     Dates: start: 20230201
  29. PANTOPRAZOLE SODIUM [Concomitant]
     Active Substance: PANTOPRAZOLE SODIUM
     Indication: Prophylaxis
     Dosage: UNK, QD
     Route: 065
     Dates: start: 20220927
  30. FAMOTIDINE [Concomitant]
     Active Substance: FAMOTIDINE
     Indication: Prophylaxis
     Dosage: UNK, (0.5 DAYS)
     Route: 065
     Dates: start: 20220414, end: 20220416
  31. DEXTROSE [Concomitant]
     Active Substance: DEXTROSE\DEXTROSE MONOHYDRATE
     Dosage: QD
     Route: 065
     Dates: start: 20220322, end: 20220324
  32. DEXTROSE [Concomitant]
     Active Substance: DEXTROSE\DEXTROSE MONOHYDRATE
     Dosage: QD
     Route: 065
     Dates: start: 20220322, end: 20220324
  33. DEXTROSE [Concomitant]
     Active Substance: DEXTROSE\DEXTROSE MONOHYDRATE
     Dosage: QD
     Route: 065
     Dates: start: 20220414, end: 20220416
  34. DEXTROSE [Concomitant]
     Active Substance: DEXTROSE\DEXTROSE MONOHYDRATE
     Dosage: QD
     Route: 065
     Dates: start: 20220414, end: 20220416
  35. DEXTROSE [Concomitant]
     Active Substance: DEXTROSE\DEXTROSE MONOHYDRATE
     Indication: Prophylaxis
     Dosage: UNK, QD
     Route: 065
     Dates: start: 20220322, end: 20220324
  36. DEXTROSE [Concomitant]
     Active Substance: DEXTROSE\DEXTROSE MONOHYDRATE
     Dosage: UNK, QD
     Route: 065
     Dates: start: 20220414, end: 20220416
  37. SODIUM CHLORIDE [Concomitant]
     Active Substance: SODIUM CHLORIDE
     Indication: Product used for unknown indication
     Dosage: UNK, QD
     Route: 065
     Dates: start: 20220322, end: 20220324
  38. SOPHAFYLLIN [Concomitant]
     Indication: Product used for unknown indication
     Dosage: UNK, QD
     Route: 065
     Dates: start: 20220322, end: 20220324
  39. TERCEF [Concomitant]
     Indication: Prophylaxis
     Dosage: UNK, (0.5 DAY)
     Route: 065
     Dates: start: 20220414, end: 20220416
  40. ASCORBIC ACID [Concomitant]
     Active Substance: ASCORBIC ACID
     Indication: Product used for unknown indication
     Dosage: UNK UNK, QD
     Route: 065
     Dates: start: 20220322, end: 20220324
  41. ASCORBIC ACID [Concomitant]
     Active Substance: ASCORBIC ACID
     Dosage: UNK (0.5 DAY)
     Route: 065
     Dates: start: 20220414, end: 20220416
  42. VITAMIN C [Concomitant]
     Active Substance: ASCORBIC ACID
     Indication: Product used for unknown indication
     Dosage: UNK
     Route: 065
     Dates: start: 20220322, end: 20220324
  43. VITAMIN C [Concomitant]
     Active Substance: ASCORBIC ACID
     Dosage: UNK
     Route: 065
     Dates: start: 20220414, end: 20220416
  44. Vivace [Concomitant]
     Indication: Product used for unknown indication
     Dosage: UNK UNK, BID
     Route: 065
     Dates: start: 20220927

REACTIONS (14)
  - Dyspnoea [Not Recovered/Not Resolved]
  - Neuropathy peripheral [Not Recovered/Not Resolved]
  - Aphthous ulcer [Recovered/Resolved]
  - Dizziness [Recovered/Resolved]
  - Headache [Recovered/Resolved]
  - Hypertension [Recovered/Resolved]
  - Cough [Not Recovered/Not Resolved]
  - Alopecia [Not Recovered/Not Resolved]
  - Chest pain [Not Recovered/Not Resolved]
  - Oropharyngeal pain [Recovered/Resolved]
  - Bone pain [Not Recovered/Not Resolved]
  - Dysphonia [Recovered/Resolved]
  - Dysphagia [Recovered/Resolved]
  - Folliculitis [Recovered/Resolved]

NARRATIVE: CASE EVENT DATE: 20211220
